FAERS Safety Report 6386542-0 (Version None)
Quarter: 2009Q4

REPORT INFORMATION
  Report Type: 
  Country: None (occurrence: None)
  Receive Date: 20091002
  Receipt Date: 20090306
  Transmission Date: 20100525
  Serious: No
  Sender: FDA-Public Use
  Company Number: US-ASTRAZENECA-2009UW06186

PATIENT
  Age: 31241 Day
  Sex: Female

DRUGS (1)
  1. ARIMIDEX [Suspect]
     Route: 048

REACTIONS (4)
  - FALL [None]
  - JOINT SPRAIN [None]
  - MALAISE [None]
  - WEIGHT DECREASED [None]
